FAERS Safety Report 13704293 (Version 1)
Quarter: 2017Q2

REPORT INFORMATION
  Report Type: Spontaneous
  Country: US (occurrence: US)
  Receive Date: 20170630
  Receipt Date: 20170630
  Transmission Date: 20170830
  Serious: Yes (Other)
  Sender: FDA-Public Use
  Company Number: US-ENDO PHARMACEUTICALS INC-2016-004904

PATIENT
  Sex: Female

DRUGS (2)
  1. LORAZEPAM TABLETS [Suspect]
     Active Substance: LORAZEPAM
     Route: 065
     Dates: start: 2010, end: 201507
  2. LORAZEPAM TABLETS [Suspect]
     Active Substance: LORAZEPAM
     Indication: SLEEP DISORDER
     Dosage: TAPERED
     Route: 065
     Dates: start: 201508, end: 20151218

REACTIONS (11)
  - Suicidal ideation [Unknown]
  - Off label use [Recovered/Resolved]
  - Arthropathy [Unknown]
  - Pollakiuria [Unknown]
  - Loss of personal independence in daily activities [Not Recovered/Not Resolved]
  - Drug ineffective for unapproved indication [Unknown]
  - Agoraphobia [Unknown]
  - Burning sensation [Not Recovered/Not Resolved]
  - Drug withdrawal syndrome [Unknown]
  - Paranoia [Unknown]
  - Cerebral disorder [Unknown]

NARRATIVE: CASE EVENT DATE: 2010
